FAERS Safety Report 14294717 (Version 1)
Quarter: 2017Q4

REPORT INFORMATION
  Report Type: Report from Study
  Country: None (occurrence: US)
  Receive Date: 20171218
  Receipt Date: 20171218
  Transmission Date: 20180321
  Serious: Yes (Hospitalization, Other)
  Sender: FDA-Public Use
  Company Number: US-ABBVIE-17K-163-2178850-00

PATIENT
  Age: 62 Year
  Sex: Female
  Weight: 39.5 kg

DRUGS (3)
  1. HUMIRA [Suspect]
     Active Substance: ADALIMUMAB
     Indication: CROHN^S DISEASE
     Dosage: LOADING DOSE
     Route: 058
     Dates: start: 20170830, end: 20170830
  2. HUMIRA [Suspect]
     Active Substance: ADALIMUMAB
     Route: 058
     Dates: start: 201709, end: 2017
  3. HUMIRA [Suspect]
     Active Substance: ADALIMUMAB
     Route: 058
     Dates: start: 201709, end: 201709

REACTIONS (6)
  - Abdominal abscess [Recovering/Resolving]
  - Malaise [Unknown]
  - Colitis [Recovering/Resolving]
  - Large intestinal obstruction [Recovering/Resolving]
  - Wound [Unknown]
  - Gastric operation [Unknown]

NARRATIVE: CASE EVENT DATE: 2017
